FAERS Safety Report 10259933 (Version 1)
Quarter: 2014Q2

REPORT INFORMATION
  Report Type: Spontaneous
  Country: US (occurrence: US)
  Receive Date: 20140625
  Receipt Date: 20140625
  Transmission Date: 20141212
  Serious: Yes (Other)
  Sender: FDA-Public Use
  Company Number: US-FRI-1000068356

PATIENT
  Age: 82 Year
  Sex: Female

DRUGS (4)
  1. LINZESS [Suspect]
     Dosage: 145MCG
     Route: 048
     Dates: start: 201405, end: 201405
  2. LINZESS [Suspect]
     Dosage: 290MCG
     Route: 048
     Dates: start: 201405, end: 20140601
  3. LAXATIVE NOS [Concomitant]
  4. AVALIDE [Concomitant]
     Indication: HYPERTENSION

REACTIONS (3)
  - Blood pressure increased [Recovering/Resolving]
  - Drug ineffective [Unknown]
  - Headache [Recovered/Resolved]
